FAERS Safety Report 4793455-4 (Version None)
Quarter: 2005Q4

REPORT INFORMATION
  Report Type: 
  Country: None (occurrence: None)
  Receive Date: 20051011
  Receipt Date: 20050317
  Transmission Date: 20060501
  Serious: No
  Sender: FDA-Public Use
  Company Number: US-BRISTOL-MYERS SQUIBB COMPANY-12901765

PATIENT
  Sex: Female

DRUGS (1)
  1. METFORMIN HCL XR TABS 500 MG [Suspect]
     Dosage: DOSAGE FORM = TABLET
     Dates: start: 20050311, end: 20050311

REACTIONS (8)
  - CHILLS [None]
  - DIARRHOEA [None]
  - DRUG ADMINISTRATION ERROR [None]
  - DYSPNOEA [None]
  - HYPERVENTILATION [None]
  - NAUSEA [None]
  - VERTIGO [None]
  - VOMITING [None]
